FAERS Safety Report 8206058-6 (Version None)
Quarter: 2012Q1

REPORT INFORMATION
  Report Type: 
  Country: None (occurrence: None)
  Receive Date: 20120313
  Receipt Date: 20120229
  Transmission Date: 20120608
  Serious: Yes (Hospitalization)
  Sender: FDA-Public Use
  Company Number: GB-MYLANLABS-2012S1004523

PATIENT
  Age: 61 Year
  Sex: Male

DRUGS (4)
  1. PROPRANOLOL [Concomitant]
     Indication: HYPERTENSION
     Route: 048
  2. OMEPRAZOLE [Suspect]
     Indication: DUODENAL ULCER HAEMORRHAGE
     Dates: start: 20120203, end: 20120208
  3. CLARITHROMYCIN [Concomitant]
     Indication: DUODENAL ULCER
     Dates: start: 20120203, end: 20120208
  4. PERINDOPRIL ERBUMINE [Concomitant]
     Indication: HYPERTENSION
     Route: 048

REACTIONS (1)
  - PSYCHOTIC DISORDER [None]
